FAERS Safety Report 4498532-3 (Version None)
Quarter: 2004Q4

REPORT INFORMATION
  Report Type: 
  Country: None (occurrence: None)
  Receive Date: 20041105
  Receipt Date: 20041020
  Transmission Date: 20050328
  Serious: Yes (Death, Hospitalization)
  Sender: FDA-Public Use
  Company Number: 194827

PATIENT
  Age: 53 Year
  Sex: Female
  Weight: 65.7716 kg

DRUGS (9)
  1. AVONEX [Suspect]
     Indication: MULTIPLE SCLEROSIS
     Dosage: 30 MCG QW IM
     Route: 030
     Dates: start: 19960101, end: 20030101
  2. AVONEX [Suspect]
     Indication: MULTIPLE SCLEROSIS
     Dosage: 30 MCG QW IM
     Route: 030
     Dates: start: 20030101, end: 20040607
  3. OXYCONTIN [Concomitant]
  4. AMBIEN [Concomitant]
  5. TRILEPTAL [Concomitant]
  6. CELEXA [Concomitant]
  7. KLONOPIN [Concomitant]
  8. ZYDONE [Concomitant]
  9. ESGIC-PLUS [Concomitant]

REACTIONS (14)
  - COMPLETED SUICIDE [None]
  - CONDITION AGGRAVATED [None]
  - DEHYDRATION [None]
  - DEPRESSION [None]
  - EATING DISORDER [None]
  - GUN SHOT WOUND [None]
  - HEAD INJURY [None]
  - INFLUENZA LIKE ILLNESS [None]
  - MULTIPLE SCLEROSIS RELAPSE [None]
  - NECK PAIN [None]
  - NERVOUSNESS [None]
  - REFUSAL OF TREATMENT BY PATIENT [None]
  - SLEEP DISORDER [None]
  - SLEEP WALKING [None]
